FAERS Safety Report 7640335-2 (Version None)
Quarter: 2011Q3

REPORT INFORMATION
  Report Type: 
  Country: None (occurrence: None)
  Receive Date: 20110728
  Receipt Date: 20110713
  Transmission Date: 20111222
  Serious: Yes (Life-Threatening, Hospitalization, Disabling)
  Sender: FDA-Public Use
  Company Number: US-BAYER-2011-063486

PATIENT
  Age: 65 Year
  Sex: Male
  Weight: 103.87 kg

DRUGS (11)
  1. ACETYLSALICYLIC ACID SRT [Interacting]
     Indication: ACUTE CORONARY SYNDROME
     Dates: start: 20100205
  2. MULTI-VITAMIN [Concomitant]
  3. LIPITOR [Concomitant]
  4. ALTACE [Concomitant]
  5. COMBIGAN [Concomitant]
  6. RIVAROXABAN [Suspect]
     Indication: ACUTE CORONARY SYNDROME
     Dosage: 2.5 MG OR 5 MG
     Route: 048
     Dates: start: 20100204, end: 20110609
  7. LOPRESSOR [Concomitant]
  8. NITROGLYCERIN [Concomitant]
  9. CLOPIDOGREL [Interacting]
     Indication: ACUTE CORONARY SYNDROME
  10. AZOPT [Concomitant]
  11. XALATAN [Concomitant]

REACTIONS (2)
  - AORTO-DUODENAL FISTULA [None]
  - RECTAL HAEMORRHAGE [None]
